FAERS Safety Report 18528527 (Version 1)
Quarter: 2020Q4

REPORT INFORMATION
  Report Type: Spontaneous
  Country: CA (occurrence: CA)
  Receive Date: 20201120
  Receipt Date: 20201120
  Transmission Date: 20210114
  Serious: Yes (Death, Hospitalization)
  Sender: FDA-Public Use
  Company Number: CA-JNJFOC-20201124964

PATIENT
  Age: 40 Year
  Sex: Female

DRUGS (8)
  1. TRAMACET [Concomitant]
     Active Substance: ACETAMINOPHEN\TRAMADOL
     Route: 065
  2. ULTRAM [Suspect]
     Active Substance: TRAMADOL HYDROCHLORIDE
     Indication: PRODUCT USED FOR UNKNOWN INDICATION
     Route: 065
  3. HCTZ [Concomitant]
     Active Substance: HYDROCHLOROTHIAZIDE
  4. FLEXERIL [Concomitant]
     Active Substance: CYCLOBENZAPRINE HYDROCHLORIDE
  5. COVERSYL                           /00790703/ [Concomitant]
     Active Substance: PERINDOPRIL
     Route: 065
  6. CAMBIA [Suspect]
     Active Substance: DICLOFENAC POTASSIUM
     Indication: HEADACHE
  7. NAPROXEN. [Concomitant]
     Active Substance: NAPROXEN
  8. CAMBIA [Suspect]
     Active Substance: DICLOFENAC POTASSIUM
     Indication: MUSCLE STRAIN
     Dosage: POWDER FOR SOLUTION
     Route: 048

REACTIONS (3)
  - Aneurysm ruptured [Fatal]
  - Hypertension [Fatal]
  - Subarachnoid haemorrhage [Fatal]
